FAERS Safety Report 4932216-X (Version None)
Quarter: 2006Q1

REPORT INFORMATION
  Report Type: 
  Country: None (occurrence: None)
  Receive Date: 20060228
  Receipt Date: 20060215
  Transmission Date: 20060701
  Serious: Yes (Hospitalization)
  Sender: FDA-Public Use
  Company Number: 2005165533

PATIENT
  Age: 59 Year
  Sex: Female
  Weight: 87 kg

DRUGS (6)
  1. CLINDAMYCIN HCL [Suspect]
     Indication: GINGIVITIS
     Dosage: 2100 MG (300 MG, 3 IN 1 D),ORAL
     Route: 048
     Dates: start: 20051102, end: 20051108
  2. ALL OTHER THERAPEUTIC PRODUCTS (ALL OTHER THERAPEUTIC PRODUCTS) [Concomitant]
  3. CIPRONEX (CIPROFLOXACIN) [Concomitant]
  4. CLONAZEPAM [Concomitant]
  5. LERIVON (MIANSERIN HYDROCHLORIDE) [Concomitant]
  6. PETYLYL (DESIPRAMINE HYDROCHLORIDE) [Concomitant]

REACTIONS (6)
  - BODY TEMPERATURE INCREASED [None]
  - DRUG ERUPTION [None]
  - ERYTHEMA [None]
  - ORAL MUCOSA EROSION [None]
  - RASH PAPULAR [None]
  - SCAB [None]
